FAERS Safety Report 23342174 (Version 1)
Quarter: 2023Q4

REPORT INFORMATION
  Report Type: Report from Study
  Country: None (occurrence: US)
  Receive Date: 20231227
  Receipt Date: 20231227
  Transmission Date: 20240110
  Serious: Yes (Death, Other)
  Sender: FDA-Public Use
  Company Number: US-SERB S.A.S.-2149791

PATIENT
  Age: 6 Year
  Sex: Male

DRUGS (2)
  1. CROFAB [Suspect]
     Active Substance: CROTALIDAE POLYVALENT IMMUNE FAB (OVINE)
     Indication: Snake bite
     Route: 065
  2. ANAVIP [Suspect]
     Active Substance: PIT VIPER (CROTALINAE) IMMUNE GLOBULIN ANTIVENIN (EQUINE)

REACTIONS (13)
  - Death [Fatal]
  - Brain oedema [Fatal]
  - Shock [Unknown]
  - Anaphylactic reaction [Unknown]
  - Haemoglobin decreased [Unknown]
  - Haematocrit decreased [Unknown]
  - Blood creatine phosphokinase increased [Unknown]
  - Prothrombin time prolonged [Unknown]
  - Platelet count decreased [Unknown]
  - Blood fibrinogen decreased [Unknown]
  - Therapy change [Unknown]
  - Off label use [Unknown]
  - Underdose [Unknown]
